FAERS Safety Report 8080842-4 (Version None)
Quarter: 2012Q1

REPORT INFORMATION
  Report Type: 
  Country: None (occurrence: None)
  Receive Date: 20120130
  Receipt Date: 20111010
  Transmission Date: 20120608
  Serious: No
  Sender: FDA-Public Use
  Company Number: US-MUTUAL PHARMACEUTICAL COMPANY, INC.-CLCY20110141

PATIENT
  Sex: Male
  Weight: 95.34 kg

DRUGS (2)
  1. CRESTOR [Concomitant]
     Indication: BLOOD CHOLESTEROL INCREASED
     Route: 048
     Dates: start: 20090101
  2. COLCRYS [Suspect]
     Indication: GOUT
     Route: 048
     Dates: start: 20111008, end: 20111010

REACTIONS (3)
  - CHILLS [None]
  - DIARRHOEA [None]
  - HYPOAESTHESIA [None]
